FAERS Safety Report 4955214-9 (Version None)
Quarter: 2006Q1

REPORT INFORMATION
  Report Type: 
  Country: None (occurrence: None)
  Receive Date: 20060322
  Receipt Date: 20060309
  Transmission Date: 20060701
  Serious: Yes (Other)
  Sender: FDA-Public Use
  Company Number: 2006034541

PATIENT
  Age: 77 Year
  Sex: Male
  Weight: 96.1626 kg

DRUGS (5)
  1. VIAGRA [Suspect]
     Indication: ERECTILE DYSFUNCTION
     Dosage: (100 MG)
     Dates: end: 20050101
  2. ASPIRIN [Concomitant]
  3. VITAMIN E [Concomitant]
  4. MULTIVITAMIN [Concomitant]
  5. EXCEDRIN EXTRA STRENGTH (ACETYLSALICYLIC ACID, CAFFEINE, PARACETAMOL) [Concomitant]

REACTIONS (5)
  - BLOOD CHOLESTEROL INCREASED [None]
  - CATARACT OPERATION [None]
  - EYE DEGENERATIVE DISORDER [None]
  - OVERWEIGHT [None]
  - VISUAL ACUITY REDUCED [None]
